FAERS Safety Report 10067441 (Version 2)
Quarter: 2014Q2

REPORT INFORMATION
  Report Type: Spontaneous
  Country: JP (occurrence: None)
  Receive Date: 20140407
  Receipt Date: 20140617
  Transmission Date: 20141212
  Serious: Yes (Other)
  Sender: FDA-Public Use
  Company Number: JP-015164

PATIENT
  Age: 77 Year
  Sex: Male

DRUGS (2)
  1. DEGARELIX [Suspect]
     Indication: PROSTATE CANCER
     Route: 058
     Dates: start: 20140305, end: 20140305
  2. LEUPLIN [Concomitant]

REACTIONS (4)
  - Injection site erythema [None]
  - Injection site induration [None]
  - Injection site swelling [None]
  - Injection site irritation [None]
